FAERS Safety Report 16789288 (Version 1)
Quarter: 2019Q3

REPORT INFORMATION
  Report Type: Report from Study
  Country: MX (occurrence: MX)
  Receive Date: 20190910
  Receipt Date: 20190910
  Transmission Date: 20191005
  Serious: Yes (Hospitalization)
  Sender: FDA-Public Use
  Company Number: MX-ACTELION-A-CH2019-195370

PATIENT
  Sex: Female
  Weight: 52 kg

DRUGS (3)
  1. AMIODARONE [Concomitant]
     Active Substance: AMIODARONE
  2. ZEPENDO [Suspect]
     Active Substance: MACITENTAN
     Indication: PULMONARY ARTERIAL HYPERTENSION
     Dosage: 10 MG, QD
     Route: 048
     Dates: start: 20190130
  3. DIGOXIN. [Concomitant]
     Active Substance: DIGOXIN

REACTIONS (3)
  - Hypotension [Unknown]
  - Heart rate decreased [Unknown]
  - Feeling abnormal [Unknown]
